FAERS Safety Report 8805599 (Version 1)
Quarter: 2012Q4

REPORT INFORMATION
  Report Type: 
  Country: US (occurrence: US)
  Receive Date: 20120924
  Receipt Date: 20120924
  Transmission Date: 20130627
  Serious: Yes (Other)
  Sender: FDA-Public Use
  Company Number: US-ROCHE-1134054

PATIENT

DRUGS (2)
  1. AVASTIN [Suspect]
     Indication: NEUROENDOCRINE TUMOUR
     Dosage: days 1 and 15
     Route: 042
  2. TEMOZOLOMIDE [Suspect]
     Indication: NEUROENDOCRINE TUMOUR
     Dosage: days 1 through 7 and days 15 through 21
     Route: 048

REACTIONS (14)
  - Thrombocytopenia [Unknown]
  - Neutropenia [Unknown]
  - Upper respiratory tract infection [Unknown]
  - Lymphopenia [Unknown]
  - Nausea [Unknown]
  - Vomiting [Unknown]
  - Fatigue [Unknown]
  - Constipation [Unknown]
  - Proteinuria [Unknown]
  - Hypertension [Unknown]
  - Alanine aminotransferase increased [Unknown]
  - Hyponatraemia [Unknown]
  - Dehydration [Unknown]
  - Mycobacterium avium complex infection [Unknown]
